FAERS Safety Report 22371673 (Version 1)
Quarter: 2023Q2

REPORT INFORMATION
  Report Type: Spontaneous
  Country: US (occurrence: US)
  Receive Date: 20230526
  Receipt Date: 20230526
  Transmission Date: 20230722
  Serious: Yes (Other)
  Sender: FDA-Public Use
  Company Number: US-SA-SAC20230525001455

PATIENT
  Sex: Male

DRUGS (1)
  1. DUPIXENT [Suspect]
     Active Substance: DUPILUMAB
     Dosage: 300MG; FREQUENCY: OTHER
     Route: 058
     Dates: start: 2022

REACTIONS (2)
  - Cataract [Unknown]
  - Vision blurred [Unknown]

NARRATIVE: CASE EVENT DATE: 20220101
